FAERS Safety Report 5808235-8 (Version None)
Quarter: 2008Q3

REPORT INFORMATION
  Report Type: 
  Country: None (occurrence: None)
  Receive Date: 20080709
  Receipt Date: 20080627
  Transmission Date: 20090109
  Serious: Yes (Hospitalization)
  Sender: FDA-Public Use
  Company Number: 14583

PATIENT
  Age: 68 Year
  Sex: Female

DRUGS (8)
  1. MORPHINE SULFATE [Suspect]
     Indication: PAIN
     Dosage: 60 MG TID ORALLY
     Route: 048
     Dates: start: 20080301, end: 20080501
  2. METFORMIN HCL [Concomitant]
  3. VITAPLEX PLUS VITAMIN [Concomitant]
  4. HYDROCHLOROTHIAZIDE [Concomitant]
  5. TIMOLOL MALEATE [Concomitant]
  6. LIPITOR [Concomitant]
  7. LEVOTHYROXINE SODIUM [Concomitant]
  8. MORPHINE [Concomitant]

REACTIONS (12)
  - ATRIAL FIBRILLATION [None]
  - BLOOD COUNT ABNORMAL [None]
  - BLOOD DISORDER [None]
  - DIABETES MELLITUS [None]
  - GALLBLADDER DISORDER [None]
  - HOT FLUSH [None]
  - INFECTION [None]
  - LETHARGY [None]
  - NAUSEA [None]
  - PHARMACEUTICAL PRODUCT COMPLAINT [None]
  - SOMNOLENCE [None]
  - URINARY TRACT INFECTION [None]
